FAERS Safety Report 8481540-5 (Version None)
Quarter: 2012Q3

REPORT INFORMATION
  Report Type: 
  Country: None (occurrence: None)
  Receive Date: 20120702
  Receipt Date: 20120621
  Transmission Date: 20120928
  Serious: Yes (Other)
  Sender: FDA-Public Use
  Company Number: US-BAYER-201017353NA

PATIENT
  Age: 39 Year
  Sex: Female
  Weight: 63.636 kg

DRUGS (18)
  1. ALLEGRA [Concomitant]
     Indication: MULTIPLE ALLERGIES
     Dates: start: 20050101
  2. TRAMADOL HCL [Concomitant]
  3. PLAVIX [Concomitant]
  4. YAZ [Suspect]
     Dosage: UNK UNK, UNK
     Route: 048
     Dates: start: 20050101, end: 20080101
  5. ASTELIN [Concomitant]
  6. LEVAQUIN [Concomitant]
  7. YASMIN [Suspect]
     Dosage: UNK
     Dates: start: 20050101, end: 20080101
  8. IMITREX [Concomitant]
  9. YAZ [Suspect]
     Dosage: UNK
     Dates: start: 20061101, end: 20080301
  10. VALTREX [Concomitant]
  11. AZITHROMYCIN [Concomitant]
  12. CLINDAMYCIN [Concomitant]
  13. KEFLEX [Concomitant]
  14. YASMIN [Suspect]
     Dosage: UNK
     Dates: start: 20050801, end: 20061101
  15. ACETAMINOPHEN [Concomitant]
     Indication: ANALGESIC THERAPY
  16. IBUPROFEN (ADVIL) [Concomitant]
     Indication: ANALGESIC THERAPY
  17. NITROFURANTOIN [Concomitant]
  18. FLUCONAZOLE [Concomitant]

REACTIONS (5)
  - PAIN [None]
  - DEEP VEIN THROMBOSIS [None]
  - THROMBOSIS [None]
  - WEIGHT INCREASED [None]
  - OEDEMA PERIPHERAL [None]
